FAERS Safety Report 23435884 (Version 5)
Quarter: 2024Q1

REPORT INFORMATION
  Report Type: Report from Study
  Country: CO (occurrence: CO)
  Receive Date: 20240124
  Receipt Date: 20240304
  Transmission Date: 20240410
  Serious: Yes (Hospitalization)
  Sender: FDA-Public Use
  Company Number: CO-JNJFOC-20231213793

PATIENT
  Age: 55 Year
  Sex: Male
  Weight: 75 kg

DRUGS (1)
  1. SIMPONI [Suspect]
     Active Substance: GOLIMUMAB
     Indication: Ankylosing spondylitis
     Dosage: TREATMENT START DATE, ALSO REPORTED AS 15-JUL-2021.?LAST DRUG APPLICATION: 28-NOV-2023(ALSO REPORTED
     Route: 058
     Dates: start: 20210615

REACTIONS (1)
  - Urinary tract infection [Not Recovered/Not Resolved]

NARRATIVE: CASE EVENT DATE: 20231102
